FAERS Safety Report 13727302 (Version 7)
Quarter: 2017Q4

REPORT INFORMATION
  Report Type: Spontaneous
  Country: IT (occurrence: IT)
  Receive Date: 20170707
  Receipt Date: 20171213
  Transmission Date: 20180320
  Serious: Yes (Hospitalization, Other)
  Sender: FDA-Public Use
  Company Number: IT-BRISTOL-MYERS SQUIBB COMPANY-BMS-2017-058994

PATIENT
  Age: 66 Year
  Sex: Female

DRUGS (2)
  1. EUTIROX [Concomitant]
     Active Substance: LEVOTHYROXINE SODIUM
     Indication: HYPOTHYROIDISM
     Dosage: 150 ?G, UNK
     Route: 048
  2. OPDIVO [Suspect]
     Active Substance: NIVOLUMAB
     Indication: NON-SMALL CELL LUNG CANCER
     Dosage: 210 MG, QCYCLE
     Route: 042
     Dates: start: 20170414, end: 20170503

REACTIONS (15)
  - Cardiac pacemaker insertion [Unknown]
  - Myasthenia gravis [Recovering/Resolving]
  - Transaminases increased [Recovering/Resolving]
  - Pneumonia [Recovered/Resolved]
  - Hypophysitis [Recovering/Resolving]
  - Dyspnoea [Recovered/Resolved]
  - Eyelid ptosis [Recovering/Resolving]
  - Pyrexia [Recovered/Resolved]
  - Diarrhoea [Unknown]
  - Atrioventricular block [Recovering/Resolving]
  - Autoimmune hepatitis [Recovering/Resolving]
  - Asthenia [Recovering/Resolving]
  - Hypothyroidism [Recovering/Resolving]
  - Respiratory tract inflammation [Recovered/Resolved]
  - Thyroiditis [Unknown]

NARRATIVE: CASE EVENT DATE: 20170422
